FAERS Safety Report 12305004 (Version 1)
Quarter: 2016Q2

REPORT INFORMATION
  Report Type: Spontaneous
  Country: US (occurrence: None)
  Receive Date: 20160425
  Receipt Date: 20160425
  Transmission Date: 20160815
  Serious: No
  Sender: FDA-Public Use
  Company Number: None

PATIENT
  Age: 63 Year

DRUGS (1)
  1. COPAXONE [Suspect]
     Active Substance: GLATIRAMER ACETATE
     Dosage: 40MG THREE TIMES WE  SUBQ
     Route: 058

REACTIONS (2)
  - Pain in extremity [None]
  - Facial pain [None]

NARRATIVE: CASE EVENT DATE: 20160422
